FAERS Safety Report 6819004-4 (Version None)
Quarter: 2010Q3

REPORT INFORMATION
  Report Type: 
  Country: None (occurrence: None)
  Receive Date: 20100707
  Receipt Date: 20100628
  Transmission Date: 20110219
  Serious: Yes (Hospitalization)
  Sender: FDA-Public Use
  Company Number: FR-TYCO HEALTHCARE/MALLINCKRODT-T201001532

PATIENT
  Age: 38 Year
  Sex: Female

DRUGS (2)
  1. OPTIJECT [Suspect]
     Indication: COMPUTERISED TOMOGRAM
     Dosage: UNK, SINGLE
     Route: 042
     Dates: start: 20100217, end: 20100217
  2. AERIUS                             /01398501/ [Concomitant]
     Indication: PREMEDICATION
     Dosage: UNK
     Dates: start: 20100217, end: 20100217

REACTIONS (3)
  - RASH PAPULAR [None]
  - THROAT TIGHTNESS [None]
  - URTICARIA [None]
